FAERS Safety Report 8458914-1 (Version None)
Quarter: 2012Q2

REPORT INFORMATION
  Report Type: 
  Country: None (occurrence: None)
  Receive Date: 20120622
  Receipt Date: 20120611
  Transmission Date: 20120825
  Serious: Yes (Other)
  Sender: FDA-Public Use
  Company Number: US-SANOFI-AVENTIS-2012SA041853

PATIENT
  Age: 20 Year
  Sex: Female
  Weight: 47.7 kg

DRUGS (4)
  1. PLAQUENIL [Suspect]
  2. CELEBREX [Suspect]
     Route: 048
     Dates: start: 20100101
  3. PREDNISONE TAB [Suspect]
  4. CELEBREX [Suspect]
     Route: 048

REACTIONS (9)
  - DECREASED APPETITE [None]
  - ARTHRALGIA [None]
  - SWELLING [None]
  - CROHN'S DISEASE [None]
  - NAUSEA [None]
  - SYSTEMIC LUPUS ERYTHEMATOSUS [None]
  - CONDITION AGGRAVATED [None]
  - INFLAMMATION [None]
  - RHEUMATOID ARTHRITIS [None]
